FAERS Safety Report 10020422 (Version 1)
Quarter: 2014Q1

REPORT INFORMATION
  Report Type: Spontaneous
  Country: BR (occurrence: BR)
  Receive Date: 20140319
  Receipt Date: 20140319
  Transmission Date: 20141002
  Serious: Yes (Other)
  Sender: FDA-Public Use
  Company Number: BR-AMGEN-BRASP2014018816

PATIENT
  Age: 62 Year
  Sex: Male
  Weight: 51 kg

DRUGS (3)
  1. ENBREL [Suspect]
     Indication: RHEUMATOID ARTHRITIS
     Dosage: 50 MG, ONCE WEEKLY
     Route: 065
     Dates: start: 201309
  2. PREDNISONE [Concomitant]
     Dosage: UNK
  3. ARTROLIVE [Concomitant]
     Dosage: UNK

REACTIONS (3)
  - Diabetes mellitus [Unknown]
  - Corneal thinning [Unknown]
  - Corneal disorder [Unknown]
